FAERS Safety Report 5515654-6 (Version None)
Quarter: 2007Q4

REPORT INFORMATION
  Report Type: 
  Country: None (occurrence: None)
  Receive Date: 20071113
  Receipt Date: 20070814
  Transmission Date: 20080405
  Serious: No
  Sender: FDA-Public Use
  Company Number: A0666771A

PATIENT
  Age: 60 Year
  Sex: Male

DRUGS (9)
  1. COREG [Suspect]
     Indication: DRUG USE FOR UNKNOWN INDICATION
     Dosage: 6.25MG FOUR TIMES PER DAY
     Route: 048
     Dates: start: 20070601
  2. KLOR-CON [Concomitant]
  3. GLUCOPHAGE [Concomitant]
  4. GLUCOTROL [Concomitant]
  5. LIPITOR [Concomitant]
  6. DIOXIN [Concomitant]
  7. ZOLOFT [Concomitant]
  8. FUROSEMIDE [Concomitant]
  9. BENICAR [Concomitant]

REACTIONS (2)
  - DRUG ADMINISTRATION ERROR [None]
  - OVERDOSE [None]
